FAERS Safety Report 5729834-8 (Version None)
Quarter: 2008Q2

REPORT INFORMATION
  Report Type: 
  Country: None (occurrence: None)
  Receive Date: 20080501
  Receipt Date: 20080421
  Transmission Date: 20081010
  Serious: No
  Sender: FDA-Public Use
  Company Number: 000744

PATIENT
  Age: 9 Month
  Sex: Male

DRUGS (10)
  1. BUSULFEX [Suspect]
     Indication: STEM CELL TRANSPLANT
     Dosage: 6 ML INTRAVENOUS; INTRAVENOUS
     Route: 042
     Dates: start: 20071030, end: 20071031
  2. BUSULFEX [Suspect]
     Indication: STEM CELL TRANSPLANT
     Dosage: 6 ML INTRAVENOUS; INTRAVENOUS
     Route: 042
     Dates: start: 20071101, end: 20071102
  3. BUSULFEX [Suspect]
     Indication: STEM CELL TRANSPLANT
     Dosage: 6 ML INTRAVENOUS; INTRAVENOUS
     Route: 042
     Dates: start: 20071103, end: 20071103
  4. ETOPOSIDE [Suspect]
     Dosage: INTRAVENOUS; INTRAVENOUS
     Route: 042
     Dates: start: 20071103, end: 20071103
  5. CYCLOPHOSPHAMIDE [Suspect]
     Dosage: INTRAVENOUS
     Route: 042
     Dates: start: 20071104, end: 20071105
  6. CLONAZEPAM [Concomitant]
  7. LENOGRASTIM (LENOGRASTIM) [Concomitant]
  8. NARTOGRASTIM (NARTOGRASTIM) [Concomitant]
  9. METHOTREXATE [Concomitant]
  10. CYCLOSPORINE [Concomitant]

REACTIONS (6)
  - BONE MARROW TRANSPLANT [None]
  - DERMATITIS [None]
  - DIARRHOEA [None]
  - FEBRILE NEUTROPENIA [None]
  - INFECTION [None]
  - MUCOSAL INFLAMMATION [None]
